FAERS Safety Report 9199597 (Version 1)
Quarter: 2013Q1

REPORT INFORMATION
  Report Type: Spontaneous
  Country: US (occurrence: US)
  Receive Date: 20130329
  Receipt Date: 20130329
  Transmission Date: 20140127
  Serious: No
  Sender: FDA-Public Use
  Company Number: US-GLAXOSMITHKLINE-A1009950A

PATIENT
  Age: 65 Year
  Sex: Female

DRUGS (3)
  1. BENLYSTA [Suspect]
     Indication: SYSTEMIC LUPUS ERYTHEMATOSUS
     Route: 042
     Dates: start: 201204
  2. UNKNOWN MEDICATION [Concomitant]
     Indication: MIGRAINE
  3. PREDNISONE [Concomitant]
     Indication: HEADACHE

REACTIONS (3)
  - Headache [Not Recovered/Not Resolved]
  - White blood cell count increased [Unknown]
  - Insomnia [Unknown]
